FAERS Safety Report 8615542-2 (Version None)
Quarter: 2012Q3

REPORT INFORMATION
  Report Type: 
  Country: None (occurrence: None)
  Receive Date: 20120823
  Receipt Date: 20120821
  Transmission Date: 20120928
  Serious: Yes (Life-Threatening, Hospitalization)
  Sender: FDA-Public Use
  Company Number: GB-JNJFOC-20120810247

PATIENT
  Age: 82 Year
  Sex: Female
  Weight: 60 kg

DRUGS (4)
  1. IBUPROFEN [Suspect]
     Indication: TOOTHACHE
     Dosage: 400MG. 3 TIMES IN 1 DAY
     Route: 048
     Dates: start: 20120702, end: 20120806
  2. ADCAL-D3 [Concomitant]
     Route: 065
  3. RISEDRONATE SODIUM [Concomitant]
     Route: 065
  4. CLOMETHIAZOLE [Concomitant]
     Route: 065

REACTIONS (6)
  - DUODENAL ULCER [None]
  - GASTROINTESTINAL HAEMORRHAGE [None]
  - HAEMATEMESIS [None]
  - SMALL INTESTINAL HAEMORRHAGE [None]
  - MELAENA [None]
  - SYNCOPE [None]
